FAERS Safety Report 13442316 (Version 1)
Quarter: 2017Q2

REPORT INFORMATION
  Report Type: Spontaneous
  Country: FR (occurrence: FR)
  Receive Date: 20170413
  Receipt Date: 20170413
  Transmission Date: 20170830
  Serious: Yes (Life-Threatening, Hospitalization)
  Sender: FDA-Public Use
  Company Number: FR-BRISTOL-MYERS SQUIBB COMPANY-BMS-2017-029711

PATIENT
  Age: 31 Year
  Sex: Male

DRUGS (1)
  1. KENACORT [Suspect]
     Active Substance: TRIAMCINOLONE
     Indication: PRODUCT USED FOR UNKNOWN INDICATION
     Dosage: UNK UNK, QMO
     Route: 065

REACTIONS (7)
  - Pruritus [Unknown]
  - Choking sensation [Unknown]
  - Palpitations [Unknown]
  - Injection site pain [Unknown]
  - Decreased appetite [Unknown]
  - Weight decreased [Unknown]
  - Injection site discolouration [Unknown]
